FAERS Safety Report 7354611-4 (Version None)
Quarter: 2011Q1

REPORT INFORMATION
  Report Type: 
  Country: None (occurrence: None)
  Receive Date: 20110316
  Receipt Date: 20110312
  Transmission Date: 20110831
  Serious: No
  Sender: FDA-Public Use
  Company Number: US-PFIZER INC-2011054781

PATIENT
  Sex: Male

DRUGS (1)
  1. CHANTIX [Suspect]
     Dosage: UNK
     Route: 048
     Dates: start: 20100101

REACTIONS (5)
  - FLUID RETENTION [None]
  - ABDOMINAL DISTENSION [None]
  - MUSCLE SWELLING [None]
  - PRURITUS [None]
  - MYALGIA [None]
